FAERS Safety Report 19767131 (Version 1)
Quarter: 2021Q3

REPORT INFORMATION
  Report Type: Spontaneous
  Country: US (occurrence: US)
  Receive Date: 20210830
  Receipt Date: 20210830
  Transmission Date: 20211014
  Serious: Yes (Disabling)
  Sender: FDA-Public Use
  Company Number: None

PATIENT
  Age: 25 Year
  Sex: Female
  Weight: 74.25 kg

DRUGS (8)
  1. TRIAMCINOLONE [Suspect]
     Active Substance: TRIAMCINOLONE
  2. CLOBETASOL PROPRIONATE [Suspect]
     Active Substance: CLOBETASOL PROPIONATE
     Indication: ECZEMA
     Dates: start: 20180801, end: 20210101
  3. TRI SPRINTEC BIRTH CONTROL [Concomitant]
  4. FISH OIL [Concomitant]
     Active Substance: FISH OIL
  5. PROBIOTIC [Concomitant]
     Active Substance: PROBIOTICS NOS
  6. ZYRTEC [Concomitant]
     Active Substance: CETIRIZINE HYDROCHLORIDE
  7. VALACYCLOVIR [Concomitant]
     Active Substance: VALACYCLOVIR HYDROCHLORIDE
  8. MULTIVITAMIN [Concomitant]
     Active Substance: VITAMINS

REACTIONS (6)
  - Withdrawal syndrome [None]
  - Feeling of body temperature change [None]
  - Rash papular [None]
  - Skin atrophy [None]
  - Rash pruritic [None]
  - Drug ineffective [None]

NARRATIVE: CASE EVENT DATE: 20210101
